FAERS Safety Report 16975115 (Version 1)
Quarter: 2019Q4

REPORT INFORMATION
  Report Type: Spontaneous
  Country: US (occurrence: US)
  Receive Date: 20191029
  Receipt Date: 20191029
  Transmission Date: 20200122
  Serious: Yes (Life-Threatening, Hospitalization, Disabling, Other)
  Sender: FDA-Public Use
  Company Number: None

PATIENT
  Age: 58 Year
  Sex: Female
  Weight: 54 kg

DRUGS (9)
  1. LISINOPRIL. [Concomitant]
     Active Substance: LISINOPRIL
  2. PROPRANOLOL [Concomitant]
     Active Substance: PROPRANOLOL HYDROCHLORIDE
  3. POTASSIUM [Concomitant]
     Active Substance: POTASSIUM
  4. CLONIDINE. [Concomitant]
     Active Substance: CLONIDINE
  5. AMLODIPINE [Concomitant]
     Active Substance: AMLODIPINE BESYLATE
  6. HALDOL [Suspect]
     Active Substance: HALOPERIDOL
     Indication: DRUG THERAPY
     Dosage: ?          QUANTITY:1 INJECTION(S);OTHER FREQUENCY:HOSPITAL GAVE;?
     Route: 042
     Dates: start: 20190429, end: 20190430
  7. ZOLOFT [Concomitant]
     Active Substance: SERTRALINE HYDROCHLORIDE
  8. FLUDROCORTISONE [Concomitant]
     Active Substance: FLUDROCORTISONE
  9. MAGNESIUM [Concomitant]
     Active Substance: MAGNESIUM

REACTIONS (3)
  - Cardiac arrest [None]
  - Respiratory failure [None]
  - Torsade de pointes [None]

NARRATIVE: CASE EVENT DATE: 20190430
